FAERS Safety Report 15636960 (Version 3)
Quarter: 2018Q4

REPORT INFORMATION
  Report Type: Spontaneous
  Country: CN (occurrence: CN)
  Receive Date: 20181120
  Receipt Date: 20181205
  Transmission Date: 20190205
  Serious: Yes (Other)
  Sender: FDA-Public Use
  Company Number: CN-GLAXOSMITHKLINE-CN2018GSK208456

PATIENT
  Age: 45 Year
  Sex: Male
  Weight: 70 kg

DRUGS (1)
  1. VENTOLIN [Suspect]
     Active Substance: ALBUTEROL SULFATE
     Indication: ASTHMA
     Dosage: 100 UG, UNK, 200 DOSE
     Route: 055

REACTIONS (8)
  - Product complaint [Unknown]
  - Productive cough [Unknown]
  - Headache [Recovering/Resolving]
  - Foreign body in respiratory tract [Unknown]
  - Airway complication of anaesthesia [Recovering/Resolving]
  - Pharyngeal inflammation [Not Recovered/Not Resolved]
  - Throat irritation [Not Recovered/Not Resolved]
  - Haemoptysis [Recovering/Resolving]

NARRATIVE: CASE EVENT DATE: 20181113
